FAERS Safety Report 19854868 (Version 1)
Quarter: 2021Q3

REPORT INFORMATION
  Report Type: Spontaneous
  Country: US (occurrence: US)
  Receive Date: 20210918
  Receipt Date: 20210918
  Transmission Date: 20211014
  Serious: Yes (Other)
  Sender: FDA-Public Use
  Company Number: None

PATIENT
  Age: 44 Year
  Sex: Female
  Weight: 62.1 kg

DRUGS (5)
  1. HUMIRA [Concomitant]
     Active Substance: ADALIMUMAB
  2. OLD FAMILY PURPLE 450MG DELTA 8 HEMP GUM DROPS [Suspect]
     Active Substance: .DELTA.8-TETRAHYDROCANNABINOL\HERBALS
     Indication: ARTHRITIS
     Dosage: ?          QUANTITY:2 GUM DROP;?
     Route: 048
     Dates: start: 20210909, end: 20210909
  3. CELEBREX [Concomitant]
     Active Substance: CELECOXIB
  4. SYNTHROID [Concomitant]
     Active Substance: LEVOTHYROXINE SODIUM
  5. DAILY WOMEN^S VITAMIN [Concomitant]

REACTIONS (8)
  - Fall [None]
  - Product use complaint [None]
  - Vertigo [None]
  - Vomiting [None]
  - Feeling abnormal [None]
  - Panic reaction [None]
  - Hallucination [None]
  - Tremor [None]

NARRATIVE: CASE EVENT DATE: 20210909
